FAERS Safety Report 6223367-0 (Version None)
Quarter: 2009Q2

REPORT INFORMATION
  Report Type: 
  Country: None (occurrence: None)
  Receive Date: 20090611
  Receipt Date: 20090529
  Transmission Date: 20091009
  Serious: Yes (Other)
  Sender: FDA-Public Use
  Company Number: US-ELI_LILLY_AND_COMPANY-US200905006023

PATIENT
  Sex: Female

DRUGS (1)
  1. FORTEO [Suspect]

REACTIONS (8)
  - ABASIA [None]
  - ASTHENIA [None]
  - BLISTER [None]
  - BLOOD POTASSIUM DECREASED [None]
  - ERYTHEMA [None]
  - LYMPHOEDEMA [None]
  - MALAISE [None]
  - OEDEMA PERIPHERAL [None]
